FAERS Safety Report 9833172 (Version 2)
Quarter: 2014Q1

REPORT INFORMATION
  Report Type: Spontaneous
  Country: CA (occurrence: CA)
  Receive Date: 20140121
  Receipt Date: 20140121
  Transmission Date: 20141002
  Serious: Yes (Hospitalization)
  Sender: FDA-Public Use
  Company Number: CA-BAXTER-2013BAX053765

PATIENT
  Age: 77 Year
  Sex: Female

DRUGS (4)
  1. DIANEAL PD4 SOLUTION WITH 1.5% DEXTROSE AND 2.5 MEQ/L CALCIUM [Suspect]
     Indication: SCLERODERMA RENAL CRISIS
     Route: 033
     Dates: start: 201309, end: 201310
  2. DIANEAL PD4 SOLUTION WITH 1.5% DEXTROSE AND 2.5 MEQ/L CALCIUM [Suspect]
     Route: 033
     Dates: start: 201312
  3. EXTRANEAL [Suspect]
     Indication: SCLERODERMA RENAL CRISIS
     Route: 033
     Dates: start: 201309, end: 201310
  4. EXTRANEAL [Suspect]
     Route: 033
     Dates: start: 201312

REACTIONS (2)
  - Renal mass [Recovered/Resolved]
  - Dyspnoea [Recovered/Resolved]
